FAERS Safety Report 15690205 (Version 1)
Quarter: 2018Q4

REPORT INFORMATION
  Report Type: Spontaneous
  Country: US (occurrence: US)
  Receive Date: 20181205
  Receipt Date: 20181205
  Transmission Date: 20190205
  Serious: No
  Sender: FDA-Public Use
  Company Number: US-PFIZER INC-2018500714

PATIENT
  Age: 61 Year
  Sex: Male

DRUGS (1)
  1. SOMAVERT [Suspect]
     Active Substance: PEGVISOMANT
     Dosage: 30 MG, DAILY
     Dates: start: 20161231

REACTIONS (11)
  - High density lipoprotein decreased [Unknown]
  - Blood glucose increased [Unknown]
  - Blood alkaline phosphatase decreased [Unknown]
  - Glycosylated haemoglobin increased [Unknown]
  - Blood prolactin decreased [Unknown]
  - Low density lipoprotein decreased [Unknown]
  - Blood triglycerides increased [Unknown]
  - Neutrophil count increased [Unknown]
  - Insulin-like growth factor increased [Unknown]
  - Cortisol decreased [Unknown]
  - Blood growth hormone increased [Unknown]

NARRATIVE: CASE EVENT DATE: 20170223
